FAERS Safety Report 4459702-3 (Version None)
Quarter: 2004Q3

REPORT INFORMATION
  Report Type: 
  Country: None (occurrence: None)
  Receive Date: 20040928
  Receipt Date: 20040921
  Transmission Date: 20050211
  Serious: Yes (Hospitalization)
  Sender: FDA-Public Use
  Company Number: GB-JNJFOC-20040904397

PATIENT
  Sex: Male

DRUGS (6)
  1. BLINDED; INFLIXIMAB, RECOMBINANT [Suspect]
     Route: 042
  2. BLINDED; INFLIXIMAB, RECOMBINANT [Suspect]
     Route: 042
  3. BLINDED; INFLIXIMAB, RECOMBINANT [Suspect]
     Route: 042
  4. PLACEBO [Suspect]
     Route: 042
  5. PLACEBO [Suspect]
     Route: 042
  6. PLACEBO [Suspect]
     Route: 042

REACTIONS (4)
  - ANOREXIA [None]
  - ANXIETY [None]
  - NAUSEA [None]
  - VOMITING [None]
